FAERS Safety Report 10951022 (Version 1)
Quarter: 2015Q1

REPORT INFORMATION
  Report Type: Spontaneous
  Country: US (occurrence: None)
  Receive Date: 20150226
  Receipt Date: 20150226
  Transmission Date: 20150721
  Serious: Yes (Hospitalization)
  Sender: FDA-Public Use
  Company Number: TAP2005Q00146

PATIENT
  Age: 54 Year
  Sex: Female
  Weight: 111.13 kg

DRUGS (3)
  1. LIPITOR [Suspect]
     Active Substance: ATORVASTATIN CALCIUM
     Indication: BLOOD CHOLESTEROL INCREASED
     Route: 048
     Dates: start: 2000, end: 200408
  2. PREVACID [Suspect]
     Active Substance: LANSOPRAZOLE
     Indication: GASTROOESOPHAGEAL REFLUX DISEASE
     Route: 048
     Dates: start: 2000
  3. DIOVAN [Suspect]
     Active Substance: VALSARTAN
     Indication: HYPERTENSION
     Route: 048
     Dates: start: 2004

REACTIONS (6)
  - Cholelithiasis [None]
  - Gallbladder pain [None]
  - Breath odour [None]
  - Hypertension [None]
  - Hepatic enzyme increased [None]
  - Blood cholesterol increased [None]

NARRATIVE: CASE EVENT DATE: 2000
